FAERS Safety Report 10797623 (Version 1)
Quarter: 2015Q1

REPORT INFORMATION
  Report Type: Spontaneous
  Country: US (occurrence: US)
  Receive Date: 20150216
  Receipt Date: 20150216
  Transmission Date: 20150721
  Serious: Yes (Other)
  Sender: FDA-Public Use
  Company Number: US-RECKITT BENCKISER PHARMACEUTICAL, INC-RB-075689-2015

PATIENT
  Sex: Female

DRUGS (1)
  1. SUBOXONE [Suspect]
     Active Substance: BUPRENORPHINE HYDROCHLORIDE\NALOXONE HYDROCHLORIDE
     Indication: PRODUCT USED FOR UNKNOWN INDICATION
     Dosage: UNKNOWN
     Route: 065

REACTIONS (8)
  - Coronary artery thrombosis [Unknown]
  - Cardiac disorder [Unknown]
  - Tooth disorder [Unknown]
  - Drug withdrawal syndrome [Unknown]
  - Neoplasm malignant [Unknown]
  - Migraine [Not Recovered/Not Resolved]
  - Headache [Unknown]
  - Substance abuse [Unknown]
